FAERS Safety Report 17427414 (Version 1)
Quarter: 2020Q1

REPORT INFORMATION
  Report Type: Spontaneous
  Country: FR (occurrence: FR)
  Receive Date: 20200218
  Receipt Date: 20200218
  Transmission Date: 20200409
  Serious: Yes (Other)
  Sender: FDA-Public Use
  Company Number: FR-ACCORD-172813

PATIENT
  Age: 58 Year
  Sex: Male
  Weight: 78 kg

DRUGS (9)
  1. PERINDOPRIL [Interacting]
     Active Substance: PERINDOPRIL
     Indication: CARDIAC FAILURE
     Route: 048
     Dates: start: 20191122, end: 20191130
  2. HEPARIN [Concomitant]
     Active Substance: HEPARIN SODIUM
     Route: 042
     Dates: start: 20191103
  3. XENETIX [Interacting]
     Active Substance: IOBITRIDOL
     Dosage: 350 (350 MG IODINE / ML)  FOR CT SCAN
     Route: 042
     Dates: start: 20191201, end: 20191201
  4. VISIPAQUE [Interacting]
     Active Substance: IODIXANOL
     Dosage: 270 MG I / ML FOR ANGIOPLASTY
     Route: 042
     Dates: start: 20191126, end: 20191126
  5. BISOPROLOL [Concomitant]
     Active Substance: BISOPROLOL
     Indication: CARDIAC FAILURE
     Route: 048
     Dates: start: 20191122, end: 20191130
  6. EPLERENONE. [Suspect]
     Active Substance: EPLERENONE
     Indication: CARDIAC FAILURE
     Route: 048
     Dates: start: 20191122, end: 20191130
  7. KARDEGIC [Concomitant]
     Active Substance: ASPIRIN DL-LYSINE
     Dosage: 75 MG
     Route: 048
     Dates: start: 201911
  8. CLOPIDOGREL [Concomitant]
     Active Substance: CLOPIDOGREL BISULFATE
     Route: 048
     Dates: start: 20191125
  9. FUROSEMIDE. [Interacting]
     Active Substance: FUROSEMIDE
     Indication: CARDIAC FAILURE
     Route: 048
     Dates: start: 201911, end: 20191130

REACTIONS (2)
  - Drug interaction [Unknown]
  - Acute kidney injury [Recovered/Resolved]

NARRATIVE: CASE EVENT DATE: 201911
